FAERS Safety Report 15386709 (Version 1)
Quarter: 2018Q3

REPORT INFORMATION
  Report Type: Spontaneous
  Country: DE (occurrence: DE)
  Receive Date: 20180914
  Receipt Date: 20180914
  Transmission Date: 20181010
  Serious: Yes (Hospitalization, Other)
  Sender: FDA-Public Use
  Company Number: DE-ASTRAZENECA-2018SF16495

PATIENT
  Sex: Female

DRUGS (9)
  1. SYMBICORT [Suspect]
     Active Substance: BUDESONIDE\FORMOTEROL FUMARATE DIHYDRATE
     Dosage: MDI
     Route: 055
  2. PREDNI HEXAL [Concomitant]
  3. VIGANTOLETTEN [Concomitant]
     Active Substance: CHOLECALCIFEROL
  4. SYMBICORT [Suspect]
     Active Substance: BUDESONIDE\FORMOTEROL FUMARATE DIHYDRATE
     Dosage: TWO TIMES A DAY
     Route: 055
  5. MAGNESIUM [Concomitant]
     Active Substance: MAGNESIUM
     Dosage: 400
  6. SYMBICORT [Suspect]
     Active Substance: BUDESONIDE\FORMOTEROL FUMARATE DIHYDRATE
     Dosage: 320 MG TWO TIMES A DAY
     Route: 055
  7. SPIRIVA [Concomitant]
     Active Substance: TIOTROPIUM BROMIDE MONOHYDRATE
     Route: 048
  8. DUORESP SPIRO [Concomitant]
     Dosage: 200/6 ?G,TWICE A DAY
  9. QUETIAPINE. [Concomitant]
     Active Substance: QUETIAPINE

REACTIONS (13)
  - Obstructive airways disorder [Unknown]
  - Peroneal nerve palsy [Unknown]
  - Mononeuropathy multiplex [Unknown]
  - Pulmonary embolism [Unknown]
  - Asthma [Unknown]
  - Haemophilus infection [Unknown]
  - Eosinophilia [Unknown]
  - Alveolitis [Unknown]
  - Depression [Unknown]
  - Eosinophilic granulomatosis with polyangiitis [Unknown]
  - Colon adenoma [Unknown]
  - Chronic obstructive pulmonary disease [Unknown]
  - Drug dose omission [Unknown]
